FAERS Safety Report 6907322-0 (Version None)
Quarter: 2010Q3

REPORT INFORMATION
  Report Type: 
  Country: None (occurrence: None)
  Receive Date: 20100730
  Receipt Date: 20100726
  Transmission Date: 20110219
  Serious: Yes (Life-Threatening)
  Sender: FDA-Public Use
  Company Number: 2010SP038203

PATIENT
  Sex: Female

DRUGS (3)
  1. SAPHRIS [Suspect]
     Indication: BIPOLAR DISORDER
     Dosage: 5 MG; BID;PO 10 MG; BID; PO
     Route: 048
     Dates: start: 20100501, end: 20100501
  2. KLONOPIN [Concomitant]
  3. LEXAPRO [Concomitant]

REACTIONS (1)
  - ANAPHYLACTIC SHOCK [None]
